FAERS Safety Report 9851248 (Version 4)
Quarter: 2014Q4

REPORT INFORMATION
  Report Type: Report from Study
  Country: DE (occurrence: DE)
  Receive Date: 20140128
  Receipt Date: 20141219
  Transmission Date: 20150529
  Serious: Yes (Hospitalization, Other)
  Sender: FDA-Public Use
  Company Number: DE-UCBSA-110834

PATIENT
  Age: 51 Year
  Sex: Male
  Weight: 75 kg

DRUGS (19)
  1. PREDNISOLON [Concomitant]
     Active Substance: PREDNISOLONE
     Dosage: 7 MG, ONCE DAILY (QD)
     Dates: start: 20120321, end: 20120812
  2. RISEDRON [Concomitant]
     Indication: OSTEOPENIA
     Dosage: 35 MG, AS NEEDED (PRN)
     Dates: start: 20110813, end: 20140414
  3. AMLODIPIN [Concomitant]
     Active Substance: AMLODIPINE BESYLATE
     Indication: HYPERTENSION
     Dosage: 5 MG, ONCE DAILY (QD)
     Dates: start: 20130220
  4. RISEDRON [Concomitant]
     Indication: OSTEOPOROSIS
     Dosage: 35 MG, FREQUENCY: Q2S
     Route: 048
     Dates: start: 20111103, end: 20131204
  5. IBUPROFEN. [Concomitant]
     Active Substance: IBUPROFEN
     Indication: RHEUMATOID ARTHRITIS
     Dosage: FREQUENCY: PRN
     Route: 048
     Dates: start: 20090611
  6. FOLIC ACID. [Concomitant]
     Active Substance: FOLIC ACID
     Indication: SUPPLEMENTATION THERAPY
     Dosage: 5 MG, AS NEEDED (PRN)
     Route: 048
     Dates: start: 20080903
  7. PREDNISOLON [Concomitant]
     Active Substance: PREDNISOLONE
     Dosage: 10 MG, ONCE DAILY (QD)
     Dates: start: 20120203, end: 20120321
  8. IBUPROFEN. [Concomitant]
     Active Substance: IBUPROFEN
     Dosage: 800 MG, ONCE DAILY (QD)
     Route: 048
     Dates: start: 20090611, end: 20121114
  9. METEX [Concomitant]
     Active Substance: METFORMIN HYDROCHLORIDE
     Indication: RHEUMATOID ARTHRITIS
     Dosage: 15 MG, AS NEEDED (PRN)
     Route: 048
     Dates: start: 20080903, end: 201401
  10. LEFLUNOMIDE. [Concomitant]
     Active Substance: LEFLUNOMIDE
     Indication: RHEUMATOID ARTHRITIS
     Route: 048
     Dates: start: 200909
  11. CERTOLIZUMAB PEGOL RA [Suspect]
     Active Substance: CERTOLIZUMAB PEGOL
     Indication: RHEUMATOID ARTHRITIS
     Dosage: NUMBER OF DOSES RECEIVED: APPROXIMATELY 52
     Route: 058
     Dates: start: 20120208, end: 201401
  12. IBUPROFEN. [Concomitant]
     Active Substance: IBUPROFEN
     Dosage: 300 MG, AS NEEDED (PRN)
     Route: 048
     Dates: start: 20121114, end: 20140414
  13. PREDNISOLON [Concomitant]
     Active Substance: PREDNISOLONE
     Indication: RHEUMATOID ARTHRITIS
     Dosage: UNK
     Route: 048
     Dates: start: 20080903
  14. PREDNISOLON [Concomitant]
     Active Substance: PREDNISOLONE
     Dosage: 5 MG, ONCE DAILY (QD)
     Dates: start: 20120813, end: 20130821
  15. METHOTREXATE [Concomitant]
     Active Substance: METHOTREXATE
     Indication: RHEUMATOID ARTHRITIS
     Dosage: 15 MG, AS NEEDED (PRN)
     Dates: start: 20120203, end: 20140414
  16. RAMIPRIL. [Concomitant]
     Active Substance: RAMIPRIL
     Indication: HYPERTENSION
     Dosage: 2.5 MG, ONCE DAILY (QD)
     Route: 048
     Dates: start: 20130220
  17. DEKRISTOL [Concomitant]
     Active Substance: CHOLECALCIFEROL
     Indication: OSTEOPENIA
     Dosage: 20000 IU, FREQUENCY: Q2S
     Dates: start: 20101125, end: 20140414
  18. AMLODIPINE [Concomitant]
     Active Substance: AMLODIPINE BESYLATE
     Indication: HYPERTENSION
     Dosage: 2.5 MG, ONCE DAILY (QD)
     Route: 048
     Dates: start: 20130220
  19. PREDNISOLON [Concomitant]
     Active Substance: PREDNISOLONE
     Dosage: 20 MG, ONCE DAILY (QD)
     Dates: start: 20140206, end: 20140414

REACTIONS (1)
  - Tuberculosis [Not Recovered/Not Resolved]

NARRATIVE: CASE EVENT DATE: 20140121
